FAERS Safety Report 9480505 (Version 1)
Quarter: 2013Q3

REPORT INFORMATION
  Report Type: Spontaneous
  Country: US (occurrence: US)
  Receive Date: 20130828
  Receipt Date: 20130828
  Transmission Date: 20140515
  Serious: Yes (Other)
  Sender: FDA-Public Use
  Company Number: US-AMGEN-KDL109150

PATIENT
  Age: 58 Year
  Sex: Female

DRUGS (1)
  1. ENBREL [Suspect]
     Indication: RHEUMATOID ARTHRITIS
     Dosage: 25 MG, 2 TIMES/WK
     Route: 058
     Dates: start: 19990201, end: 20040901

REACTIONS (6)
  - Systemic lupus erythematosus [Unknown]
  - Respiratory tract congestion [Unknown]
  - Oedema peripheral [Unknown]
  - Ascites [Unknown]
  - Food allergy [Unknown]
  - Headache [Unknown]
